FAERS Safety Report 9376056 (Version 1)
Quarter: 2013Q2

REPORT INFORMATION
  Report Type: Spontaneous
  Country: US (occurrence: US)
  Receive Date: 20130629
  Receipt Date: 20130629
  Transmission Date: 20140414
  Serious: Yes (Other)
  Sender: FDA-Public Use
  Company Number: US-009507513-1306USA013966

PATIENT
  Age: 58 Year
  Sex: Female

DRUGS (3)
  1. JANUVIA [Suspect]
     Indication: TYPE 2 DIABETES MELLITUS
     Dosage: 100 MG, QD
     Route: 048
     Dates: start: 201303, end: 201305
  2. METFORMIN [Concomitant]
  3. GLIPIZIDE [Concomitant]

REACTIONS (2)
  - Pancreatitis [Recovered/Resolved]
  - Abdominal pain upper [Recovered/Resolved]
